FAERS Safety Report 9104398 (Version 2)
Quarter: 2013Q1

REPORT INFORMATION
  Report Type: Report from Study
  Country: IT (occurrence: IT)
  Receive Date: 20130219
  Receipt Date: 20130301
  Transmission Date: 20140127
  Serious: Yes (Hospitalization)
  Sender: FDA-Public Use
  Company Number: IT-ASTELLAS-2013EU001139

PATIENT
  Age: 60 Year
  Sex: Male

DRUGS (3)
  1. ENZALUTAMIDE [Suspect]
     Indication: PROSTATE CANCER METASTATIC
     Dosage: UNK
     Route: 065
     Dates: start: 20121126, end: 20130116
  2. FENTANYL [Concomitant]
     Dosage: 800 UG, UNKNOWN/D
     Route: 065
  3. HYDROMORFON [Concomitant]
     Dosage: 32 MG, UNKNOWN/D
     Route: 065

REACTIONS (2)
  - Dyskinesia [Recovered/Resolved]
  - Drug interaction [Recovered/Resolved]
